FAERS Safety Report 10379210 (Version 1)
Quarter: 2014Q3

REPORT INFORMATION
  Report Type: Spontaneous
  Country: NL (occurrence: NL)
  Receive Date: 20140812
  Receipt Date: 20140812
  Transmission Date: 20150326
  Serious: Yes (Hospitalization)
  Sender: FDA-Public Use
  Company Number: NL-GLAXOSMITHKLINE-B1023133A

PATIENT
  Age: 68 Year
  Sex: Male

DRUGS (6)
  1. COMBODART [Suspect]
     Active Substance: DUTASTERIDE\TAMSULOSIN
     Indication: BENIGN PROSTATIC HYPERPLASIA
     Route: 048
     Dates: start: 2010, end: 20140806
  2. KLYX KLYSMA [Concomitant]
     Dosage: 1UNIT PER DAY
     Route: 054
  3. DUSPATAL [Concomitant]
     Active Substance: MEBEVERINE
     Dosage: 200MG TWICE PER DAY
     Route: 048
  4. MACROGOL + ELECTROLYTES [Concomitant]
     Dosage: 1UNIT PER DAY
     Route: 048
  5. PRIMPERAN [Concomitant]
     Active Substance: METOCLOPRAMIDE HYDROCHLORIDE
     Dosage: 10MG TWICE PER DAY
     Route: 054
  6. OMEPRAZOL [Concomitant]
     Active Substance: OMEPRAZOLE
     Dosage: 20MG PER DAY
     Route: 048

REACTIONS (3)
  - Arrhythmia [Recovering/Resolving]
  - Malaise [Recovering/Resolving]
  - Tachycardia [Recovering/Resolving]

NARRATIVE: CASE EVENT DATE: 20140806
